FAERS Safety Report 12404448 (Version 2)
Quarter: 2016Q3

REPORT INFORMATION
  Report Type: Report from Study
  Country: RU (occurrence: RU)
  Receive Date: 20160525
  Receipt Date: 20160720
  Transmission Date: 20161109
  Serious: Yes (Other)
  Sender: FDA-Public Use
  Company Number: RU-AMGEN-RUSNI2016021387

PATIENT
  Age: 32 Year
  Sex: Male

DRUGS (6)
  1. CYTOSTAR [Concomitant]
     Dosage: 30 MG, INTRALUMBAR
     Dates: start: 20100828
  2. HEPTRAL [Concomitant]
     Active Substance: ADEMETIONINE
     Dosage: 800 MG, QD
     Route: 042
     Dates: start: 20160220, end: 20160228
  3. BLINATUMOMAB [Suspect]
     Active Substance: BLINATUMOMAB
     Indication: ACUTE LYMPHOCYTIC LEUKAEMIA RECURRENT
     Dosage: 9 MUG/KG, QD
     Route: 042
     Dates: start: 20160218
  4. CARSIL [Concomitant]
     Dosage: UNK, TID
     Dates: start: 20160220, end: 20160316
  5. METHOTREXATE. [Suspect]
     Active Substance: METHOTREXATE
     Indication: PROPHYLAXIS
     Dosage: 30 MG/M2, UNK
     Route: 065
     Dates: start: 20100525
  6. DEXAMETHASONE. [Concomitant]
     Active Substance: DEXAMETHASONE
     Dosage: 4 MG, INTRALUMBAR
     Dates: start: 20130430

REACTIONS (5)
  - Pyrexia [Recovered/Resolved]
  - Leukaemic infiltration renal [Not Recovered/Not Resolved]
  - Alanine aminotransferase increased [Recovered/Resolved]
  - Hyperbilirubinaemia [Recovered/Resolved]
  - Aspartate aminotransferase increased [Recovered/Resolved]

NARRATIVE: CASE EVENT DATE: 201205
